FAERS Safety Report 5130781-3 (Version None)
Quarter: 2006Q4

REPORT INFORMATION
  Report Type: 
  Country: None (occurrence: None)
  Receive Date: 20061019
  Receipt Date: 20060425
  Transmission Date: 20070319
  Serious: Yes (Other)
  Sender: FDA-Public Use
  Company Number: PHEH2006US05419

PATIENT
  Age: 64 Year
  Sex: Female

DRUGS (13)
  1. ZOMETA [Suspect]
     Indication: METASTASES TO BONE
     Dosage: 4 MG EVERY 4 WEEKS WITH BREAKS IN BETWEEN
     Dates: start: 20040812, end: 20041111
  2. ZOMETA [Suspect]
     Dosage: 4 MG EVERY 4 WEEKS WITH BREAKS IN BETWEEN
     Dates: start: 20040412, end: 20050206
  3. ZOMETA [Suspect]
     Dosage: 4 MGEVERY 4 WEEKS WITH BREAKS IN BETWEEN
     Dates: start: 20050720, end: 20050720
  4. ZOMETA [Suspect]
     Dosage: 4 MG EVERY 4 WEEKS WITH BREAKS IN BETWEEN
     Dates: start: 20060126, end: 20060302
  5. XELODA [Concomitant]
     Dosage: 1000 MG, BID 3WEEKS ON 1 WEEK OFF
     Route: 048
     Dates: start: 20050907
  6. TYLENOL [Concomitant]
  7. MULTIVITAMIN PREPARATIONS WITH OR W/O MINERAL [Concomitant]
  8. NAVELBINE [Concomitant]
     Dosage: 50 MG WEEKLY
     Dates: start: 20040923, end: 20050519
  9. TAXOTERE [Concomitant]
     Dosage: 50 MG WEEKLY
     Dates: start: 20040923, end: 20050519
  10. DECADRON [Concomitant]
     Dosage: 20 MG WEEKLY
     Dates: start: 20040923, end: 20050519
  11. DECADRON [Concomitant]
     Dosage: 20 MG 3 WEEKS ON 1 WEEK OFF
     Dates: start: 20050622, end: 20050803
  12. ALOXI [Concomitant]
     Dosage: 0.25 MG WEEKLY
     Dates: start: 20040923, end: 20050519
  13. PACLITAXEL [Concomitant]
     Dosage: 160 MG 3 WEEKS ON 1 WEEK OFF
     Dates: start: 20050622, end: 20050803

REACTIONS (13)
  - ABSCESS [None]
  - BONE DISORDER [None]
  - BONE TRIMMING [None]
  - DRUG INEFFECTIVE [None]
  - EATING DISORDER [None]
  - GINGIVAL BLEEDING [None]
  - IMPAIRED HEALING [None]
  - OSTEONECROSIS [None]
  - RASH [None]
  - TOOTH DISORDER [None]
  - TOOTH EXTRACTION [None]
  - TOOTH INFECTION [None]
  - WOUND DEBRIDEMENT [None]
